FAERS Safety Report 10874827 (Version 1)
Quarter: 2015Q1

REPORT INFORMATION
  Report Type: Spontaneous
  Country: BR (occurrence: BR)
  Receive Date: 20150227
  Receipt Date: 20150227
  Transmission Date: 20150721
  Serious: Yes (Hospitalization)
  Sender: FDA-Public Use
  Company Number: BR-IMPAX LABORATORIES, INC-2015-IPXL-00211

PATIENT
  Age: 66 Year
  Sex: Female

DRUGS (2)
  1. OMEPRAZOLE DELAYED RELEASE [Suspect]
     Active Substance: OMEPRAZOLE
     Dosage: UNK
     Route: 065
  2. OMEPRAZOLE DELAYED RELEASE [Suspect]
     Active Substance: OMEPRAZOLE
     Indication: PEPTIC ULCER
     Dosage: 40 MG, DAILY
     Route: 065
     Dates: start: 2000

REACTIONS (2)
  - Hypomagnesaemia [Unknown]
  - Hypoparathyroidism secondary [Recovered/Resolved]
